FAERS Safety Report 12649135 (Version 1)
Quarter: 2016Q3

REPORT INFORMATION
  Report Type: Spontaneous
  Country: US (occurrence: US)
  Receive Date: 20160812
  Receipt Date: 20160812
  Transmission Date: 20161109
  Serious: Yes (Hospitalization)
  Sender: FDA-Public Use
  Company Number: US-ROCHE-1809052

PATIENT
  Age: 57 Year
  Sex: Male

DRUGS (11)
  1. MIRALAX [Concomitant]
     Active Substance: POLYETHYLENE GLYCOL 3350
  2. BIOTIN [Concomitant]
     Active Substance: BIOTIN
  3. GLUCOSAMINE CHONDROITIN COMPLEX [Concomitant]
     Active Substance: CHONDROITIN SULFATE (BOVINE)\GLUCOSAMINE HYDROCHLORIDE
  4. TECENTRIQ [Suspect]
     Active Substance: ATEZOLIZUMAB
     Dosage: ONE DOSE
     Route: 065
     Dates: start: 20160721
  5. PROTONIX [Concomitant]
     Active Substance: PANTOPRAZOLE SODIUM
  6. AMBIEN [Concomitant]
     Active Substance: ZOLPIDEM TARTRATE
  7. MELOXICAM. [Concomitant]
     Active Substance: MELOXICAM
  8. FISH OIL [Concomitant]
     Active Substance: FISH OIL
  9. TECENTRIQ [Suspect]
     Active Substance: ATEZOLIZUMAB
     Indication: BLADDER CANCER
     Route: 065
  10. SENNA [Concomitant]
     Active Substance: SENNA LEAF\SENNOSIDES\SENNOSIDES A AND B
  11. ZOFRAN [Concomitant]
     Active Substance: ONDANSETRON HYDROCHLORIDE

REACTIONS (6)
  - Abdominal pain [Not Recovered/Not Resolved]
  - Intestinal obstruction [Unknown]
  - Diarrhoea [Unknown]
  - Vomiting [Unknown]
  - Intestinal dilatation [Unknown]
  - Ileus [Unknown]

NARRATIVE: CASE EVENT DATE: 20160804
